FAERS Safety Report 8477369-4 (Version None)
Quarter: 2012Q2

REPORT INFORMATION
  Report Type: 
  Country: None (occurrence: None)
  Receive Date: 20120629
  Receipt Date: 20120622
  Transmission Date: 20120825
  Serious: Yes (Other)
  Sender: FDA-Public Use
  Company Number: FR-BAYER-2012-062778

PATIENT
  Age: 80 Year
  Sex: Male

DRUGS (3)
  1. MOXIFLOXACIN HCL [Suspect]
     Dosage: UNK
     Route: 048
     Dates: start: 20110913, end: 20111017
  2. AMOXICILLIN [Suspect]
     Dosage: 2 G, UNK
     Dates: start: 20110913, end: 20111017
  3. CEFEPIME HYDROCHLORIDE [Suspect]
     Dosage: 2 G, UNK
     Route: 042
     Dates: end: 20111017

REACTIONS (4)
  - DRUG RASH WITH EOSINOPHILIA AND SYSTEMIC SYMPTOMS [None]
  - EOSINOPHIL COUNT INCREASED [None]
  - PLEURAL EFFUSION [None]
  - PYREXIA [None]
